FAERS Safety Report 19099239 (Version 5)
Quarter: 2022Q1

REPORT INFORMATION
  Report Type: Report from Study
  Country: US (occurrence: US)
  Receive Date: 20210406
  Receipt Date: 20220218
  Transmission Date: 20220423
  Serious: Yes (Other)
  Sender: FDA-Public Use
  Company Number: US-SEATTLE GENETICS-2020SGN04018

PATIENT
  Sex: Female

DRUGS (5)
  1. TUCATINIB [Suspect]
     Active Substance: TUCATINIB
     Indication: Product used for unknown indication
     Dosage: 200 MG, BID
     Route: 065
  2. TUCATINIB [Suspect]
     Active Substance: TUCATINIB
     Dosage: 50 MG
     Route: 065
  3. TUCATINIB [Suspect]
     Active Substance: TUCATINIB
     Dosage: 150 UNK
     Route: 065
  4. TUCATINIB [Suspect]
     Active Substance: TUCATINIB
     Dosage: UNK
     Route: 065
  5. XELODA [Suspect]
     Active Substance: CAPECITABINE
     Indication: Product used for unknown indication
     Route: 065

REACTIONS (10)
  - Osteonecrosis [Unknown]
  - Nephrolithiasis [Unknown]
  - Blister [Unknown]
  - Limb discomfort [Unknown]
  - Product dose omission issue [Unknown]
  - Memory impairment [Unknown]
  - Lip swelling [Unknown]
  - Oral mucosal blistering [Unknown]
  - Adverse drug reaction [Unknown]
  - Rash [Unknown]
